FAERS Safety Report 25685491 (Version 3)
Quarter: 2025Q3

REPORT INFORMATION
  Report Type: Spontaneous
  Country: CO (occurrence: CO)
  Receive Date: 20250815
  Receipt Date: 20250911
  Transmission Date: 20251020
  Serious: Yes (Death, Hospitalization)
  Sender: BAYER HEALTHCARE PHARMACEUTICALS INC.
  Company Number: CO-BAYER-2025A107746

PATIENT
  Age: 72 Year
  Sex: Male
  Weight: 68 kg

DRUGS (5)
  1. STIVARGA [Suspect]
     Active Substance: REGORAFENIB MONOHYDRATE
     Indication: Large intestine benign neoplasm
     Dosage: 160 MG, QD
     Route: 048
  2. STIVARGA [Suspect]
     Active Substance: REGORAFENIB MONOHYDRATE
     Indication: Colon cancer
     Dosage: 80 MG, QD
  3. STIVARGA [Suspect]
     Active Substance: REGORAFENIB MONOHYDRATE
     Indication: Lung neoplasm malignant
  4. STIVARGA [Suspect]
     Active Substance: REGORAFENIB MONOHYDRATE
     Indication: Metastases to spine
  5. STIVARGA [Suspect]
     Active Substance: REGORAFENIB MONOHYDRATE
     Indication: Bladder cancer

REACTIONS (4)
  - Colon cancer metastatic [Fatal]
  - Respiratory arrest [Fatal]
  - Back pain [None]
  - Gait inability [Recovering/Resolving]

NARRATIVE: CASE EVENT DATE: 20250801
